FAERS Safety Report 7648017-8 (Version None)
Quarter: 2011Q3

REPORT INFORMATION
  Report Type: 
  Country: None (occurrence: None)
  Receive Date: 20110801
  Receipt Date: 20110725
  Transmission Date: 20111222
  Serious: Yes (Other)
  Sender: FDA-Public Use
  Company Number: CHPA2011US09832

PATIENT
  Sex: Male

DRUGS (1)
  1. ACETAMINOPHEN [Suspect]
     Indication: PYREXIA
     Dosage: 20 ML, ONCE/SINGLE
     Route: 048
     Dates: start: 20110411, end: 20110411

REACTIONS (2)
  - DISORIENTATION [None]
  - HALLUCINATION [None]
